FAERS Safety Report 20730886 (Version 1)
Quarter: 2022Q2

REPORT INFORMATION
  Report Type: Spontaneous
  Country: RU (occurrence: RU)
  Receive Date: 20220420
  Receipt Date: 20220420
  Transmission Date: 20220720
  Serious: Yes (Other)
  Sender: FDA-Public Use
  Company Number: RU-MLMSERVICE-20220405-3481475-1

PATIENT
  Age: 57 Year
  Sex: Female

DRUGS (5)
  1. OLANZAPINE [Suspect]
     Active Substance: OLANZAPINE
     Indication: Bipolar disorder
     Dosage: 20 MG, UNKNOWN
     Route: 065
     Dates: start: 2018
  2. QUETIAPINE [Suspect]
     Active Substance: QUETIAPINE
     Indication: Bipolar disorder
     Dosage: 200 MG, DAILY
     Route: 065
  3. OLANZAPINE [Suspect]
     Active Substance: OLANZAPINE
     Indication: Bipolar disorder
     Dosage: 10 MG, UNKNOWN
     Route: 065
  4. CARBAMAZEPINE [Suspect]
     Active Substance: CARBAMAZEPINE
     Indication: Bipolar disorder
     Dosage: 600 MG, DAILY
     Route: 065
     Dates: start: 2011
  5. PHENAZEPAM [Concomitant]
     Active Substance: PHENAZEPAM
     Indication: Bipolar disorder
     Dosage: 2 ML, UNKNOWN
     Route: 042

REACTIONS (2)
  - Autoimmune thyroiditis [Unknown]
  - Hyperprolactinaemia [Unknown]
